FAERS Safety Report 8970759 (Version 1)
Quarter: 2012Q4

REPORT INFORMATION
  Report Type: 
  Country: US (occurrence: US)
  Receive Date: 20121218
  Receipt Date: 20121218
  Transmission Date: 20130627
  Serious: No
  Sender: FDA-Public Use
  Company Number: US-ABBOTT-12P-163-0934654-00

PATIENT
  Sex: Female
  Weight: 77.18 kg

DRUGS (3)
  1. PROMETRIUM [Suspect]
     Indication: HORMONE REPLACEMENT THERAPY
     Dates: start: 201203
  2. ELESTRIN GEL [Concomitant]
     Indication: HORMONE REPLACEMENT THERAPY
  3. LISINOPRIL [Concomitant]
     Indication: HYPERTENSION

REACTIONS (4)
  - Vision blurred [Recovered/Resolved]
  - Headache [Recovered/Resolved]
  - Hormone replacement therapy [Not Recovered/Not Resolved]
  - Off label use [Not Recovered/Not Resolved]
